FAERS Safety Report 7329284-7 (Version None)
Quarter: 2011Q1

REPORT INFORMATION
  Report Type: 
  Country: None (occurrence: None)
  Receive Date: 20110303
  Receipt Date: 20110224
  Transmission Date: 20110831
  Serious: Yes (Hospitalization)
  Sender: FDA-Public Use
  Company Number: B0699327A

PATIENT
  Age: 41 Year
  Sex: Male
  Weight: 101.8 kg

DRUGS (14)
  1. ADVAIR DISKUS 100/50 [Concomitant]
  2. LYRICA [Concomitant]
  3. CRESTOR [Concomitant]
  4. AMITRIPTYLINE [Concomitant]
  5. TESTOSTERONE [Concomitant]
  6. CYTOMEL [Concomitant]
  7. AVANDIA [Suspect]
     Indication: DIABETES MELLITUS
     Dosage: 8MG PER DAY
     Route: 048
     Dates: start: 20051201, end: 20071201
  8. LEVOTHYROXINE [Concomitant]
  9. INSULIN [Concomitant]
  10. FAMOTIDINE [Concomitant]
  11. SPIRIVA [Concomitant]
  12. ALBUTEROL [Concomitant]
  13. METFORMIN [Concomitant]
  14. CYMBALTA [Concomitant]

REACTIONS (1)
  - MYOCARDIAL INFARCTION [None]
